FAERS Safety Report 8591031 (Version 5)
Quarter: 2013Q1

REPORT INFORMATION
  Report Type: Report from Study
  Country: DE (occurrence: DE)
  Receive Date: 20120601
  Receipt Date: 20130228
  Transmission Date: 20140127
  Serious: Yes (Hospitalization)
  Sender: FDA-Public Use
  Company Number: DE-BRISTOL-MYERS SQUIBB COMPANY-16620205

PATIENT
  Age: 79 Year
  Sex: Male
  Weight: 73 kg

DRUGS (7)
  1. CISPLATIN [Suspect]
     Indication: NON-SMALL CELL LUNG CANCER
     Route: 065
     Dates: start: 20101013, end: 20110322
  2. PEMETREXED DISODIUM [Suspect]
     Indication: NON-SMALL CELL LUNG CANCER
     Dosage: PEMETREXED DISODIUM VIAL
     Route: 065
     Dates: start: 20101013, end: 20110322
  3. NECITUMUMAB [Suspect]
     Indication: NON-SMALL CELL LUNG CANCER
     Dosage: 13OCT2010-09AUG2011(301D)?9AUG2011-UNKN.LAST DOSE 09AUG2011?LIQUID
     Route: 065
     Dates: start: 20101013
  4. MOVICOL [Concomitant]
     Dates: start: 20101017
  5. PANTOPRAZOLE SODIUM [Concomitant]
     Dates: start: 20101124
  6. LYRICA [Concomitant]
     Dates: start: 201107
  7. RAMIPRIL [Concomitant]
     Dates: start: 20110802

REACTIONS (2)
  - Renal failure [Not Recovered/Not Resolved]
  - Hyperkalaemia [Recovered/Resolved]
